FAERS Safety Report 8443986-0 (Version None)
Quarter: 2012Q2

REPORT INFORMATION
  Report Type: 
  Country: None (occurrence: None)
  Receive Date: 20120618
  Receipt Date: 20120611
  Transmission Date: 20120825
  Serious: Yes (Hospitalization)
  Sender: FDA-Public Use
  Company Number: PHHY2012FR050576

PATIENT
  Age: 79 Year
  Sex: Male

DRUGS (5)
  1. IRBESARTAN [Concomitant]
     Indication: HYPERTENSION
  2. STALEVO 100 [Suspect]
     Indication: PARKINSON'S DISEASE
     Dates: start: 20090101
  3. AZILECT [Suspect]
     Indication: PARKINSON'S DISEASE
     Dosage: 1 MG, UNK
     Route: 048
     Dates: start: 20090101, end: 20120301
  4. TRIVASTAL LP [Concomitant]
     Dosage: 50 MG, UNK
  5. PRAMIPEXOLE DIHYDROCHLORIDE [Concomitant]
     Dosage: 2.1 MG, UNK

REACTIONS (2)
  - NEOPLASM SKIN [None]
  - PRECANCEROUS SKIN LESION [None]
